FAERS Safety Report 11916115 (Version 2)
Quarter: 2016Q1

REPORT INFORMATION
  Report Type: Spontaneous
  Country: US (occurrence: US)
  Receive Date: 20160114
  Receipt Date: 20160201
  Transmission Date: 20160526
  Serious: No
  Sender: FDA-Public Use
  Company Number: US-SA-2016SA006545

PATIENT
  Sex: Male

DRUGS (2)
  1. RANEXA [Interacting]
     Active Substance: RANOLAZINE
     Route: 065
  2. MULTAQ [Suspect]
     Active Substance: DRONEDARONE

REACTIONS (1)
  - Drug interaction [Unknown]
